FAERS Safety Report 20480845 (Version 1)
Quarter: 2022Q1

REPORT INFORMATION
  Report Type: Spontaneous
  Country: FR (occurrence: FR)
  Receive Date: 20220216
  Receipt Date: 20220216
  Transmission Date: 20220423
  Serious: Yes (Other)
  Sender: FDA-Public Use
  Company Number: None

PATIENT
  Age: 67 Year
  Sex: Male

DRUGS (3)
  1. TOBRADEX [Suspect]
     Active Substance: DEXAMETHASONE\TOBRAMYCIN
     Indication: Chalazion
     Dosage: 1 DRP (1 GOUTTE 3 FOIS/J)
     Route: 047
     Dates: start: 20211215, end: 20220118
  2. DEXAMETHASONE\OXYTETRACYCLINE [Suspect]
     Active Substance: DEXAMETHASONE\OXYTETRACYCLINE
     Indication: Chalazion
     Dosage: 2 DOSAGE FORM (2 APPLICATIONS PAR JOUR)
     Route: 047
     Dates: start: 202110, end: 20211215
  3. DEXAMETHASONE\FRAMYCETIN [Suspect]
     Active Substance: DEXAMETHASONE\FRAMYCETIN
     Indication: Chalazion
     Dosage: 1 DRP (1 GOUTTE 2 FOIS/J)
     Route: 047
     Dates: start: 20211215, end: 20220118

REACTIONS (2)
  - Ocular hypertension [Not Recovered/Not Resolved]
  - Visual impairment [Not Recovered/Not Resolved]

NARRATIVE: CASE EVENT DATE: 20220115
